FAERS Safety Report 11212017 (Version 1)
Quarter: 2015Q2

REPORT INFORMATION
  Report Type: Spontaneous
  Country: JP (occurrence: JP)
  Receive Date: 20150623
  Receipt Date: 20150623
  Transmission Date: 20150821
  Serious: Yes (Other)
  Sender: FDA-Public Use
  Company Number: JP-PFIZER INC-2015185554

PATIENT
  Sex: Male
  Weight: 2.8 kg

DRUGS (1)
  1. SALAZOPYRIN [Suspect]
     Active Substance: SULFASALAZINE
     Indication: COLITIS ULCERATIVE
     Dosage: UNK
     Route: 064
     Dates: start: 201503, end: 20150520

REACTIONS (3)
  - Hypothermia neonatal [Unknown]
  - Maternal exposure during pregnancy [Unknown]
  - Hypoglycaemia neonatal [Unknown]
